FAERS Safety Report 7309008-X (Version None)
Quarter: 2011Q1

REPORT INFORMATION
  Report Type: 
  Country: None (occurrence: None)
  Receive Date: 20110223
  Receipt Date: 20110217
  Transmission Date: 20110831
  Serious: Yes (Death)
  Sender: FDA-Public Use
  Company Number: US-GENZYME-CLOF-1001437

PATIENT
  Age: 58 Year
  Sex: Male

DRUGS (5)
  1. CLOLAR [Suspect]
     Indication: ACUTE MYELOID LEUKAEMIA
     Dosage: 40 MG/M2, QDX5
     Route: 042
  2. CAMPATH [Suspect]
     Indication: BONE MARROW CONDITIONING REGIMEN
     Dosage: 20 MG, QDX5 ON DAYS -7 TO -3
     Route: 042
  3. FLUDARA [Suspect]
     Indication: BONE MARROW CONDITIONING REGIMEN
     Dosage: 30 MG/M2, QDX5 ON DAYS -7 TO -3
     Route: 042
  4. TACROLIMUS [Concomitant]
     Indication: IMMUNOSUPPRESSION
     Dosage: UNK, DAYS -2 TO +100
     Route: 065
  5. MELPHALAN [Suspect]
     Indication: BONE MARROW CONDITIONING REGIMEN
     Dosage: 140 MG/M2, ONCE ON DAY -2
     Route: 065

REACTIONS (2)
  - BACTERIAL SEPSIS [None]
  - MULTI-ORGAN DISORDER [None]
